FAERS Safety Report 11993830 (Version 2)
Quarter: 2016Q1

REPORT INFORMATION
  Report Type: Spontaneous
  Country: US (occurrence: US)
  Receive Date: 20160203
  Receipt Date: 20160208
  Transmission Date: 20160526
  Serious: No
  Sender: FDA-Public Use
  Company Number: US-HORIZON-RAV-0015-2016

PATIENT
  Age: 12 Year
  Sex: Male
  Weight: 59 kg

DRUGS (3)
  1. CYCLINEX 2 [Concomitant]
     Indication: PRODUCT USED FOR UNKNOWN INDICATION
  2. ARGININE [Concomitant]
     Active Substance: ARGININE
     Indication: PRODUCT USED FOR UNKNOWN INDICATION
  3. RAVICTI [Suspect]
     Active Substance: GLYCEROL PHENYLBUTYRATE
     Indication: ARGININOSUCCINATE SYNTHETASE DEFICIENCY
     Dosage: 4.5 ML TID
     Dates: start: 20140605

REACTIONS (4)
  - Overweight [Unknown]
  - Bone pain [Unknown]
  - Musculoskeletal stiffness [Unknown]
  - Growth retardation [Unknown]
